FAERS Safety Report 11925494 (Version 1)
Quarter: 2016Q1

REPORT INFORMATION
  Report Type: Spontaneous
  Country: HU (occurrence: HU)
  Receive Date: 20160118
  Receipt Date: 20160118
  Transmission Date: 20160526
  Serious: Yes (Other)
  Sender: FDA-Public Use
  Company Number: HU-ABBVIE-16P-076-1537707-00

PATIENT
  Age: 55 Year
  Sex: Female
  Weight: 75 kg

DRUGS (5)
  1. EXVIERA [Suspect]
     Active Substance: DASABUVIR
     Indication: CHRONIC HEPATITIS C
     Route: 048
     Dates: start: 20151216, end: 20160105
  2. MEDROL [Concomitant]
     Active Substance: METHYLPREDNISOLONE
     Indication: RHEUMATOID ARTHRITIS
     Route: 048
     Dates: start: 2013
  3. HUMA-FOLACID [Concomitant]
     Indication: HAEMOLYTIC ANAEMIA
     Route: 048
     Dates: start: 2013
  4. VIEKIRAX [Suspect]
     Active Substance: OMBITASVIR\PARITAPREVIR\RITONAVIR
     Indication: CHRONIC HEPATITIS C
     Dosage: 12.5/75/50 MG, 2 TABLETS AT A TIME
     Route: 048
     Dates: start: 20151216, end: 20160105
  5. CATAFLAM [Concomitant]
     Active Substance: DICLOFENAC POTASSIUM
     Indication: RHEUMATOID ARTHRITIS
     Dosage: 2-3 TABLETS A DAY
     Route: 048
     Dates: start: 2013

REACTIONS (2)
  - Arthralgia [Unknown]
  - Abscess limb [Unknown]

NARRATIVE: CASE EVENT DATE: 20160105
